FAERS Safety Report 8533168-6 (Version None)
Quarter: 2012Q2

REPORT INFORMATION
  Report Type: 
  Country: None (occurrence: None)
  Receive Date: 20120412
  Receipt Date: 20100407
  Transmission Date: 20120825
  Serious: Yes (Other)
  Sender: FDA-Public Use
  Company Number: PHHY2010US24619

PATIENT
  Sex: Male

DRUGS (2)
  1. CLOZARIL [Suspect]
  2. NEUPOGEN [Concomitant]

REACTIONS (1)
  - LEUKOPENIA [None]
